FAERS Safety Report 21287084 (Version 2)
Quarter: 2022Q3

REPORT INFORMATION
  Report Type: Spontaneous
  Country: US (occurrence: US)
  Receive Date: 20220902
  Receipt Date: 20220909
  Transmission Date: 20221027
  Serious: No
  Sender: FDA-Public Use
  Company Number: US-AMGEN-USASP2022149319

PATIENT
  Age: 60 Year
  Sex: Female

DRUGS (2)
  1. NEULASTA [Suspect]
     Active Substance: PEGFILGRASTIM
     Indication: Prophylaxis
     Dosage: Q3WK (CYCLE EVERY 3 WEEKS)
     Route: 065
     Dates: start: 20220728
  2. NEULASTA [Suspect]
     Active Substance: PEGFILGRASTIM
     Dosage: Q3WK (CYCLE EVERY 3 WEEKS)
     Route: 065
     Dates: start: 20220728

REACTIONS (2)
  - Product communication issue [Unknown]
  - Accidental exposure to product [Unknown]

NARRATIVE: CASE EVENT DATE: 20220819
